FAERS Safety Report 15742274 (Version 5)
Quarter: 2019Q3

REPORT INFORMATION
  Report Type: Spontaneous
  Country: US (occurrence: US)
  Receive Date: 20181219
  Receipt Date: 20190703
  Transmission Date: 20191004
  Serious: Yes (Other)
  Sender: FDA-Public Use
  Company Number: US-SA-2018SA342456

PATIENT
  Age: 47 Year
  Sex: Female
  Weight: 107.95 kg

DRUGS (4)
  1. TAXOTERE [Suspect]
     Active Substance: DOCETAXEL
     Dosage: UNK UNK, Q3W
     Route: 042
     Dates: start: 20101105, end: 20101105
  2. NEOSAR [Concomitant]
     Active Substance: CYCLOPHOSPHAMIDE
  3. ADRIAMYCIN [Concomitant]
     Active Substance: DOXORUBICIN HYDROCHLORIDE
  4. TAXOTERE [Suspect]
     Active Substance: DOCETAXEL
     Indication: BREAST CANCER FEMALE
     Dosage: UNK UNK, Q3W
     Route: 042
     Dates: start: 20100813, end: 20100813

REACTIONS (5)
  - Impaired quality of life [Unknown]
  - Emotional distress [Unknown]
  - Anxiety [Unknown]
  - Pain [Unknown]
  - Alopecia [Recovering/Resolving]

NARRATIVE: CASE EVENT DATE: 201105
